FAERS Safety Report 9735832 (Version 2)
Quarter: 2013Q4

REPORT INFORMATION
  Report Type: Spontaneous
  Country: US (occurrence: US)
  Receive Date: 20131206
  Receipt Date: 20131206
  Transmission Date: 20140711
  Serious: Yes (Other)
  Sender: FDA-Public Use
  Company Number: US-GILEAD-2009-0023779

PATIENT
  Sex: Female

DRUGS (12)
  1. LETAIRIS [Suspect]
     Indication: PULMONARY ARTERIAL HYPERTENSION
     Route: 048
     Dates: start: 20080717
  2. PROCRIT [Concomitant]
  3. NIFEDIPINE [Concomitant]
  4. MICARDIS [Concomitant]
  5. ALBUTEROL [Concomitant]
  6. ZEMPLAR [Concomitant]
  7. NEXIUM [Concomitant]
  8. EVOXAC [Concomitant]
  9. URSODIOL [Concomitant]
  10. XANAX [Concomitant]
  11. VIGAMOX [Concomitant]
  12. ASTEPRO [Concomitant]

REACTIONS (1)
  - Anaemia [Not Recovered/Not Resolved]
